FAERS Safety Report 4434177-9 (Version None)
Quarter: 2004Q3

REPORT INFORMATION
  Report Type: 
  Country: None (occurrence: None)
  Receive Date: 20040825
  Receipt Date: 20040811
  Transmission Date: 20050211
  Serious: Yes (Other)
  Sender: FDA-Public Use
  Company Number: F01200402425

PATIENT
  Age: 41 Year

DRUGS (4)
  1. HEPARIN [Suspect]
     Indication: ACUTE CORONARY SYNDROME
     Dosage: INTRAVENOUS
     Route: 042
     Dates: start: 20040806
  2. ACETYLSALICYLIC ACID [Concomitant]
  3. CLOPIDOGREL [Concomitant]
  4. CP IIB IIIA 1 [Concomitant]

REACTIONS (2)
  - CATHETER RELATED COMPLICATION [None]
  - THROMBOSIS [None]
